FAERS Safety Report 23689669 (Version 3)
Quarter: 2024Q2

REPORT INFORMATION
  Report Type: Report from Study
  Country: CA (occurrence: CA)
  Receive Date: 20240331
  Receipt Date: 20240506
  Transmission Date: 20240715
  Serious: Yes (Other)
  Sender: FDA-Public Use
  Company Number: CA-JNJFOC-20240373272

PATIENT
  Age: 17 Year
  Sex: Male
  Weight: 57 kg

DRUGS (4)
  1. REMICADE [Suspect]
     Active Substance: INFLIXIMAB
     Indication: Colitis ulcerative
     Route: 041
     Dates: start: 20230518
  2. REMICADE [Suspect]
     Active Substance: INFLIXIMAB
     Route: 041
  3. PREVACID [Concomitant]
     Active Substance: LANSOPRAZOLE
  4. PENTASA [Concomitant]
     Active Substance: MESALAMINE

REACTIONS (1)
  - Infusion related reaction [Recovered/Resolved]
